FAERS Safety Report 9455353 (Version 4)
Quarter: 2014Q3

REPORT INFORMATION
  Report Type: Report from Study
  Country: US (occurrence: US)
  Receive Date: 20130813
  Receipt Date: 20140819
  Transmission Date: 20150326
  Serious: Yes (Death, Other)
  Sender: FDA-Public Use
  Company Number: PHEH2013US016562

PATIENT
  Age: 62 Year
  Sex: Male

DRUGS (10)
  1. GLEEVEC [Suspect]
     Active Substance: IMATINIB MESYLATE
     Indication: GASTROINTESTINAL STROMAL TUMOUR
     Dosage: UNK UKN, UNK
     Route: 048
  2. FUROSEMIDE. [Concomitant]
     Active Substance: FUROSEMIDE
     Dosage: UNK UKN, UNK
  3. SPIRONOLACTONE. [Concomitant]
     Active Substance: SPIRONOLACTONE
     Dosage: UNK UKN, UNK
  4. METHOCARBAMOL. [Concomitant]
     Active Substance: METHOCARBAMOL
     Dosage: UNK UKN, UNK
  5. MULTIVIT//VITAMINS NOS [Concomitant]
     Active Substance: VITAMINS
     Dosage: UNK UKN, UNK
  6. PENICILLIN NOS [Suspect]
     Active Substance: PENICILLIN
     Dosage: UNK UKN, UNK
  7. SUTENT [Suspect]
     Active Substance: SUNITINIB MALATE
     Dosage: UNK UKN, UNK
  8. MEGESTROL [Concomitant]
     Active Substance: MEGESTROL
     Dosage: UNK UKN, UNK
  9. ESOMEPRAZOLE [Concomitant]
     Active Substance: ESOMEPRAZOLE
     Dosage: 20 MG, UNK
  10. TYLENOL [Concomitant]
     Active Substance: ACETAMINOPHEN
     Dosage: UNK UKN, UNK

REACTIONS (18)
  - Renal cyst [Unknown]
  - Dyspnoea [Unknown]
  - Tonsillar disorder [Unknown]
  - Melanocytic naevus [Unknown]
  - Death [Fatal]
  - Suicidal ideation [Unknown]
  - Constipation [Unknown]
  - Testicular pain [Unknown]
  - Tinea pedis [Unknown]
  - Vascular calcification [Unknown]
  - Arteriosclerosis [Unknown]
  - Tinnitus [Unknown]
  - Neoplasm recurrence [Unknown]
  - Gastrointestinal stromal tumour [Unknown]
  - Exposure to toxic agent [Unknown]
  - Myelopathy [Unknown]
  - Sleep apnoea syndrome [Unknown]
  - Atelectasis [Unknown]

NARRATIVE: CASE EVENT DATE: 20071101
